FAERS Safety Report 20771767 (Version 2)
Quarter: 2022Q2

REPORT INFORMATION
  Report Type: Spontaneous
  Country: US (occurrence: US)
  Receive Date: 20220430
  Receipt Date: 20220505
  Transmission Date: 20220721
  Serious: No
  Sender: FDA-Public Use
  Company Number: US-AIMMUNE THERAPEUTICS, INC.-2022AIMT00344

PATIENT

DRUGS (3)
  1. PALFORZIA [Suspect]
     Active Substance: PEANUT
     Indication: Food allergy
     Dosage: 80 MG, 1X/DAY
     Route: 048
     Dates: start: 20220413, end: 20220415
  2. PALFORZIA [Suspect]
     Active Substance: PEANUT
     Dosage: 40 MG, 1X/DAY, DOSE DECREASED
     Route: 048
     Dates: start: 20220427
  3. ALBUTEROL [Concomitant]
     Active Substance: ALBUTEROL
     Indication: Asthma
     Dosage: UNK

REACTIONS (5)
  - Viral upper respiratory tract infection [Recovered/Resolved]
  - Oropharyngeal pain [Recovered/Resolved]
  - Bronchial obstruction [Recovered/Resolved]
  - Asthma [Recovered/Resolved]
  - Sneezing [Recovered/Resolved]

NARRATIVE: CASE EVENT DATE: 20220401
